FAERS Safety Report 8316721 (Version 2)
Quarter: 2012Q4

REPORT INFORMATION
  Report Type: 
  Country: DE (occurrence: DE)
  Receive Date: 20111230
  Receipt Date: 20121001
  Transmission Date: 20130627
  Serious: Yes (Death, Life-Threatening, Hospitalization, Other)
  Sender: FDA-Public Use
  Company Number: DE-RANBAXY-2011RR-51342

PATIENT
  Age: 38 Year
  Sex: Male
  Weight: 89 kg

DRUGS (2)
  1. PARACETAMOL [Suspect]
     Indication: HEADACHE
     Dosage: 2 x 500mg tablet/ day, once monthly, in changing with ibuprofen
     Route: 048
     Dates: start: 2009, end: 20110915
  2. IBUPROFEN [Suspect]
     Indication: HEADACHE
     Dosage: 2 x 400mg tablet/ day, once monthly in changing with paracetamol
     Route: 048
     Dates: start: 201108, end: 20110914

REACTIONS (3)
  - Renal failure acute [Recovering/Resolving]
  - Inflammatory marker increased [None]
  - Urinary tract infection [None]
